FAERS Safety Report 17143446 (Version 1)
Quarter: 2019Q4

REPORT INFORMATION
  Report Type: Spontaneous
  Country: US (occurrence: US)
  Receive Date: 20191211
  Receipt Date: 20191211
  Transmission Date: 20200122
  Serious: No
  Sender: FDA-Public Use
  Company Number: US-AMERICAN REGENT INC-20190581

PATIENT
  Age: 72 Year
  Sex: Male

DRUGS (2)
  1. VENOFER [Suspect]
     Active Substance: IRON SUCROSE
     Indication: PRODUCT USED FOR UNKNOWN INDICATION
     Dosage: 200 MG/200 ML NORMAL SALINE 0748-0805
     Route: 042
     Dates: start: 20190322, end: 20190322
  2. VENOFER [Suspect]
     Active Substance: IRON SUCROSE
     Dosage: 200MG/200 ML NS 60 MINUTES
     Route: 042
     Dates: start: 20190321, end: 20190321

REACTIONS (1)
  - Extravasation [Unknown]

NARRATIVE: CASE EVENT DATE: 20190322
